FAERS Safety Report 10755458 (Version 2)
Quarter: 2015Q1

REPORT INFORMATION
  Report Type: Spontaneous
  Country: KR (occurrence: KR)
  Receive Date: 20150202
  Receipt Date: 20150203
  Transmission Date: 20150721
  Serious: Yes (Hospitalization)
  Sender: FDA-Public Use
  Company Number: KR-BAYER-2015-008978

PATIENT
  Age: 67 Year
  Sex: Female

DRUGS (2)
  1. ACETYLSALICYLIC ACID({=100 MG) [Suspect]
     Active Substance: ASPIRIN
     Dosage: UNK
  2. CLOPIDOGREL [Suspect]
     Active Substance: CLOPIDOGREL BISULFATE
     Dosage: UNK

REACTIONS (7)
  - Cerebral hyperperfusion syndrome [Recovered/Resolved]
  - Stupor [Recovered/Resolved]
  - Blood pressure increased [Recovered/Resolved]
  - Extensor plantar response [Recovered/Resolved]
  - Status epilepticus [Recovered/Resolved]
  - Muscular weakness [Recovered/Resolved]
  - Hyperreflexia [Recovered/Resolved]
